FAERS Safety Report 4278016-8 (Version None)
Quarter: 2004Q1

REPORT INFORMATION
  Report Type: 
  Country: None (occurrence: None)
  Receive Date: 20040121
  Receipt Date: 20030219
  Transmission Date: 20041129
  Serious: Yes (Other)
  Sender: FDA-Public Use
  Company Number: 2003-02-1882

PATIENT
  Age: 34 Year
  Sex: Male

DRUGS (1)
  1. SUBUTEX [Suspect]
     Indication: DEPENDENCE
     Dosage: 8 MG QD
     Route: 060
     Dates: start: 20020901

REACTIONS (3)
  - CONVULSION [None]
  - DRUG INEFFECTIVE [None]
  - SIMPLE PARTIAL SEIZURES [None]
